FAERS Safety Report 4950075-6 (Version None)
Quarter: 2006Q1

REPORT INFORMATION
  Report Type: 
  Country: None (occurrence: None)
  Receive Date: 20060322
  Receipt Date: 20060310
  Transmission Date: 20060701
  Serious: Yes (Hospitalization)
  Sender: FDA-Public Use
  Company Number: 2006SE01486

PATIENT
  Age: 17291 Day
  Sex: Male
  Weight: 75 kg

DRUGS (2)
  1. QUETIAPINE [Suspect]
     Indication: MENTAL DISORDER
     Route: 048
     Dates: start: 20051129, end: 20051201
  2. QUETIAPINE [Suspect]
     Route: 048
     Dates: start: 20051202, end: 20051206

REACTIONS (1)
  - PSYCHOTIC DISORDER [None]
